FAERS Safety Report 20296608 (Version 4)
Quarter: 2022Q2

REPORT INFORMATION
  Report Type: Spontaneous
  Country: JP (occurrence: JP)
  Receive Date: 20220105
  Receipt Date: 20220531
  Transmission Date: 20220720
  Serious: Yes (Hospitalization, Other)
  Sender: FDA-Public Use
  Company Number: JP-NOVARTISPH-NVSJ2021JP021515

PATIENT
  Age: 85 Year
  Sex: Female
  Weight: 59.4 kg

DRUGS (5)
  1. COSENTYX [Suspect]
     Active Substance: SECUKINUMAB
     Indication: Pustular psoriasis
     Dosage: 300 MG, QD
     Route: 058
     Dates: start: 20211221
  2. COSENTYX [Suspect]
     Active Substance: SECUKINUMAB
     Dosage: 300 MG, QD
     Route: 058
     Dates: start: 20211228
  3. COSENTYX [Suspect]
     Active Substance: SECUKINUMAB
     Dosage: 300 MG, QD
     Route: 058
     Dates: start: 20220104
  4. BETAMETHASONE DIPROPIONATE [Concomitant]
     Active Substance: BETAMETHASONE DIPROPIONATE
     Indication: Erythema
     Dosage: UNK, BID
     Route: 003
     Dates: start: 20211221
  5. PARAFFIN [Concomitant]
     Active Substance: PARAFFIN
     Indication: Erythema
     Dosage: UNK, BID
     Route: 003
     Dates: start: 20211221

REACTIONS (13)
  - Cardiac failure [Recovering/Resolving]
  - Blood pressure decreased [Unknown]
  - Malaise [Unknown]
  - Oedema peripheral [Unknown]
  - Generalised oedema [Unknown]
  - Wheezing [Unknown]
  - Atrial fibrillation [Unknown]
  - Psoriasis [Recovering/Resolving]
  - Inflammation [Unknown]
  - Prerenal failure [Unknown]
  - Haemoglobin decreased [Unknown]
  - Extrasystoles [Unknown]
  - Chest discomfort [Unknown]

NARRATIVE: CASE EVENT DATE: 20211224
